FAERS Safety Report 5384039-8 (Version None)
Quarter: 2007Q3

REPORT INFORMATION
  Report Type: 
  Country: None (occurrence: None)
  Receive Date: 20070709
  Receipt Date: 20070327
  Transmission Date: 20080115
  Serious: Yes (Other)
  Sender: FDA-Public Use
  Company Number: US-2007-003415

PATIENT

DRUGS (1)
  1. CAMPATH [Suspect]

REACTIONS (1)
  - INTESTINAL PERFORATION [None]
